FAERS Safety Report 21840395 (Version 4)
Quarter: 2023Q2

REPORT INFORMATION
  Report Type: Report from Study
  Country: CN (occurrence: CN)
  Receive Date: 20230110
  Receipt Date: 20230426
  Transmission Date: 20230721
  Serious: Yes (Hospitalization)
  Sender: FDA-Public Use
  Company Number: CN-ABBVIE-4200002

PATIENT
  Age: 24 Year
  Sex: Female
  Weight: 37 kg

DRUGS (11)
  1. HUMIRA [Suspect]
     Active Substance: ADALIMUMAB
     Indication: Crohn^s disease
     Dosage: 80 MILLIGRAM
     Route: 058
     Dates: start: 20220908, end: 20220921
  2. HUMIRA [Suspect]
     Active Substance: ADALIMUMAB
     Dosage: 1 IN ONCE
     Route: 058
     Dates: start: 20220907, end: 20220907
  3. HUMIRA [Suspect]
     Active Substance: ADALIMUMAB
     Dosage: 40 MILLIGRAM
     Route: 058
     Dates: start: 20220922, end: 20221005
  4. HUMIRA [Suspect]
     Active Substance: ADALIMUMAB
     Dosage: 80 MILLIGRAM
     Route: 058
     Dates: start: 20230118, end: 20230118
  5. HUMIRA [Suspect]
     Active Substance: ADALIMUMAB
     Dosage: 160 MILLIGRAM
     Route: 058
     Dates: start: 20221220, end: 20221220
  6. ISONIAZID [Concomitant]
     Active Substance: ISONIAZID
     Indication: Antibiotic prophylaxis
     Dosage: 0.3 GRAM
     Route: 048
     Dates: start: 20220907, end: 202212
  7. FERRIC POLYSACCHARIDE COMPLEX [Concomitant]
     Active Substance: FERRIC POLYSACCHARIDE COMPLEX
     Indication: Anaemia prophylaxis
     Dosage: 0.15 GRAM
     Route: 048
     Dates: start: 20230224
  8. DESLORATADINE [Concomitant]
     Active Substance: DESLORATADINE
     Indication: Drug therapy
     Dosage: 8.8 MILLIGRAM
     Route: 048
     Dates: start: 20230227, end: 20230304
  9. AONENG [Concomitant]
     Indication: Product used for unknown indication
     Dates: start: 20230202
  10. USTEKINUMAB [Concomitant]
     Active Substance: USTEKINUMAB
     Indication: Crohn^s disease
     Dosage: 260 MILLIGRAM
     Route: 042
     Dates: start: 20230303, end: 20230303
  11. HYDROCORTISONE BUTYRATE [Concomitant]
     Active Substance: HYDROCORTISONE BUTYRATE
     Indication: Product used for unknown indication
     Dates: start: 20230224

REACTIONS (5)
  - Intestinal obstruction [Recovered/Resolved]
  - Sleep disorder [Recovered/Resolved]
  - Depression [Recovered/Resolved]
  - COVID-19 [Recovered/Resolved]
  - Pneumonitis [Not Recovered/Not Resolved]

NARRATIVE: CASE EVENT DATE: 20221001
